FAERS Safety Report 20821481 (Version 4)
Quarter: 2025Q3

REPORT INFORMATION
  Report Type: Spontaneous
  Country: US (occurrence: US)
  Receive Date: 20220512
  Receipt Date: 20250702
  Transmission Date: 20251021
  Serious: No
  Sender: PFIZER
  Company Number: US-PFIZER INC-202101189921

PATIENT
  Age: 80 Year
  Sex: Female
  Weight: 65.77 kg

DRUGS (2)
  1. XELJANZ XR [Suspect]
     Active Substance: TOFACITINIB CITRATE
     Indication: Rheumatoid arthritis
     Dosage: 11 MG, DAILY (1 DAILY)
  2. XELJANZ XR [Suspect]
     Active Substance: TOFACITINIB CITRATE
     Dosage: 11 MG, 1X/DAY (ONE A DAY)
     Dates: start: 20220225, end: 202407

REACTIONS (3)
  - Rash [Unknown]
  - Herpes zoster [Not Recovered/Not Resolved]
  - Dry mouth [Unknown]

NARRATIVE: CASE EVENT DATE: 20240101
